FAERS Safety Report 19115981 (Version 1)
Quarter: 2021Q2

REPORT INFORMATION
  Report Type: Spontaneous
  Country: DE (occurrence: DE)
  Receive Date: 20210409
  Receipt Date: 20210409
  Transmission Date: 20210717
  Serious: Yes (Hospitalization, Other)
  Sender: FDA-Public Use
  Company Number: DE-ARVELLE THERAPEUTICS-ARV-001242

PATIENT

DRUGS (2)
  1. XCOPRI [Suspect]
     Active Substance: CENOBAMATE
     Indication: EPILEPSY
     Dosage: 12.5 MILLIGRAM, QD
     Route: 065
     Dates: start: 20201219
  2. XCOPRI [Suspect]
     Active Substance: CENOBAMATE
     Dosage: 250 MILLIGRAM, QD
     Route: 065

REACTIONS (2)
  - Suicide attempt [Unknown]
  - Intentional overdose [Unknown]

NARRATIVE: CASE EVENT DATE: 20210321
